FAERS Safety Report 7660217-X (Version None)
Quarter: 2011Q3

REPORT INFORMATION
  Report Type: 
  Country: None (occurrence: None)
  Receive Date: 20110805
  Receipt Date: 20110802
  Transmission Date: 20111222
  Serious: Yes (Death, Other)
  Sender: FDA-Public Use
  Company Number: PHHY2011US11501

PATIENT
  Sex: Male
  Weight: 82.54 kg

DRUGS (3)
  1. EXJADE [Suspect]
     Indication: MYELODYSPLASTIC SYNDROME
     Dosage: 1500 MG, UNK
     Route: 048
     Dates: start: 20101213
  2. ASPIRIN [Concomitant]
     Route: 048
  3. FLOMAX [Concomitant]
     Dosage: 0.4 G, UNK

REACTIONS (3)
  - NEOPLASM PROGRESSION [None]
  - NEOPLASM MALIGNANT [None]
  - PLATELET COUNT DECREASED [None]
